FAERS Safety Report 8048660-0 (Version None)
Quarter: 2012Q1

REPORT INFORMATION
  Report Type: 
  Country: None (occurrence: None)
  Receive Date: 20120117
  Receipt Date: 20120104
  Transmission Date: 20120608
  Serious: Yes (Other)
  Sender: FDA-Public Use
  Company Number: US-US-EMD SERONO, INC.-7104911

PATIENT
  Sex: Female

DRUGS (1)
  1. REBIF [Suspect]
     Indication: MULTIPLE SCLEROSIS
     Route: 058
     Dates: start: 20031017

REACTIONS (7)
  - CEREBRAL ARTERY OCCLUSION [None]
  - GAIT DISTURBANCE [None]
  - HEAD INJURY [None]
  - DYSGRAPHIA [None]
  - HEADACHE [None]
  - NAUSEA [None]
  - FALL [None]
